FAERS Safety Report 9258493 (Version 1)
Quarter: 2013Q2

REPORT INFORMATION
  Report Type: Spontaneous
  Country: US (occurrence: US)
  Receive Date: 20130426
  Receipt Date: 20130426
  Transmission Date: 20140414
  Serious: No
  Sender: FDA-Public Use
  Company Number: US-PFIZER INC-2013130840

PATIENT
  Age: 79 Year
  Sex: Female
  Weight: 76.19 kg

DRUGS (1)
  1. LYRICA [Suspect]
     Indication: PRURITUS
     Dosage: 75 MG, 2X/DAY
     Route: 048
     Dates: start: 20130421, end: 201304

REACTIONS (3)
  - Off label use [Unknown]
  - Pre-existing condition improved [Recovered/Resolved]
  - Therapeutic response unexpected [Unknown]
